FAERS Safety Report 5000894-5 (Version None)
Quarter: 2006Q2

REPORT INFORMATION
  Report Type: 
  Country: None (occurrence: None)
  Receive Date: 20060512
  Receipt Date: 20051025
  Transmission Date: 20061013
  Serious: No
  Sender: FDA-Public Use
  Company Number: US-GLAXOSMITHKLINE-A0579597A

PATIENT
  Age: 71 Year
  Sex: Female
  Weight: 62.7 kg

DRUGS (6)
  1. RELAFEN [Suspect]
     Indication: RHEUMATOID ARTHRITIS
     Dosage: 500MG THREE TIMES PER DAY
     Route: 048
     Dates: start: 20051026, end: 20051102
  2. FUROSEMIDE [Concomitant]
  3. INDAPAMIDE [Concomitant]
     Route: 065
  4. PREMARIN [Concomitant]
  5. CLARITIN [Concomitant]
  6. K-DUR 10 [Concomitant]

REACTIONS (3)
  - DRUG INEFFECTIVE [None]
  - MEDICATION ERROR [None]
  - MOBILITY DECREASED [None]
